FAERS Safety Report 5624425-1 (Version None)
Quarter: 2008Q1

REPORT INFORMATION
  Report Type: 
  Country: None (occurrence: None)
  Receive Date: 20080213
  Receipt Date: 20080130
  Transmission Date: 20080703
  Serious: Yes (Other)
  Sender: FDA-Public Use
  Company Number: GR-AMGEN-UK263702

PATIENT

DRUGS (6)
  1. KINERET [Suspect]
     Indication: RHEUMATOID ARTHRITIS
     Route: 058
  2. METHOTREXATE [Concomitant]
     Route: 065
  3. LEFLUNOMIDE [Concomitant]
     Route: 065
  4. CYCLOSPORINE [Concomitant]
     Route: 065
  5. CORTICOSTEROIDS [Concomitant]
     Route: 065
  6. NSAIDS [Concomitant]
     Route: 065

REACTIONS (2)
  - DRUG INEFFECTIVE [None]
  - RHEUMATOID ARTHRITIS [None]
